FAERS Safety Report 4812228-7 (Version None)
Quarter: 2005Q4

REPORT INFORMATION
  Report Type: 
  Country: None (occurrence: None)
  Receive Date: 20051028
  Receipt Date: 20040921
  Transmission Date: 20060501
  Serious: No
  Sender: FDA-Public Use
  Company Number: US-GLAXOSMITHKLINE-A0526712A

PATIENT
  Age: 49 Year
  Sex: Male
  Weight: 104.5 kg

DRUGS (2)
  1. ADVAIR DISKUS 100/50 [Suspect]
     Indication: ASTHMA
     Dosage: 1PUFF TWICE PER DAY
     Route: 055
     Dates: start: 20040413
  2. ATROVENT [Concomitant]
     Dosage: 2PUFF PER DAY
     Route: 055

REACTIONS (2)
  - AGEUSIA [None]
  - NASOPHARYNGITIS [None]
